FAERS Safety Report 10792420 (Version 1)
Quarter: 2015Q1

REPORT INFORMATION
  Report Type: Report from Study
  Country: GB (occurrence: None)
  Receive Date: 20150211
  Receipt Date: 20150211
  Transmission Date: 20150721
  Serious: Yes (Death, Hospitalization)
  Sender: FDA-Public Use
  Company Number: AMAG201500040

PATIENT

DRUGS (4)
  1. ASPIRIN (ACETYLSALICYLIC ACID) [Concomitant]
     Active Substance: ASPIRIN
  2. RIENSO (FERUMOXYTOL) INJECTION [Suspect]
     Active Substance: FERUMOXYTOL
     Indication: IMAGING PROCEDURE
     Dosage: 10.1 ML, SINGLE, INTRAVENOUS
     Route: 042
     Dates: start: 20130819, end: 20130819
  3. CLOPIDOGREL (CLOPIDOGREL BISULFATE) [Concomitant]
  4. BUSCOPAN (HYOSCINE BUTYLBROMIDE) (HYOSCINE BUTYLBROMIDE) [Concomitant]
     Active Substance: BUTYLSCOPOLAMINE

REACTIONS (4)
  - Urinary tract infection [None]
  - Cardiac arrest [None]
  - Hypophagia [None]
  - Mobility decreased [None]

NARRATIVE: CASE EVENT DATE: 20150122
